FAERS Safety Report 15365431 (Version 7)
Quarter: 2019Q3

REPORT INFORMATION
  Report Type: Spontaneous
  Country: US (occurrence: US)
  Receive Date: 20180910
  Receipt Date: 20190904
  Transmission Date: 20191004
  Serious: Yes (Other)
  Sender: FDA-Public Use
  Company Number: US-PFIZER INC-2018362518

PATIENT
  Age: 87 Year
  Sex: Female
  Weight: 69 kg

DRUGS (3)
  1. IBRANCE [Suspect]
     Active Substance: PALBOCICLIB
     Dosage: 100 MG, CYCLIC (DAYS 1-21 Q28 DAYS)
     Route: 048
     Dates: start: 20180829, end: 2018
  2. IBRANCE [Suspect]
     Active Substance: PALBOCICLIB
     Dosage: 75 MG, CYCLIC (DAYS 1-21 Q28 DAYS)
     Route: 048
  3. IBRANCE [Suspect]
     Active Substance: PALBOCICLIB
     Indication: BREAST CANCER METASTATIC
     Dosage: 100 MG, CYCLIC (DAYS 1-21 Q28 DAYS)
     Route: 048
     Dates: start: 20180629, end: 2018

REACTIONS (18)
  - Decreased appetite [Unknown]
  - Vomiting [Unknown]
  - Visual impairment [Unknown]
  - Eye irritation [Unknown]
  - Fatigue [Unknown]
  - Chest injury [Unknown]
  - Nausea [Unknown]
  - Lacrimation increased [Unknown]
  - Weight decreased [Unknown]
  - Dry eye [Unknown]
  - Erythema [Unknown]
  - Dyspnoea [Unknown]
  - Amnesia [Recovering/Resolving]
  - Glossodynia [Unknown]
  - Fall [Unknown]
  - Weight increased [Unknown]
  - White blood cell count decreased [Unknown]
  - Eye pruritus [Unknown]

NARRATIVE: CASE EVENT DATE: 2018
